FAERS Safety Report 13662748 (Version 1)
Quarter: 2017Q2

REPORT INFORMATION
  Report Type: Spontaneous
  Country: US (occurrence: US)
  Receive Date: 20170616
  Receipt Date: 20170616
  Transmission Date: 20170830
  Serious: No
  Sender: FDA-Public Use
  Company Number: None

PATIENT
  Age: 38 Year
  Sex: Female
  Weight: 91.35 kg

DRUGS (4)
  1. OMEPRAZOL [Concomitant]
     Active Substance: OMEPRAZOLE
  2. ATORVASTATIN [Concomitant]
     Active Substance: ATORVASTATIN
  3. CLINDAMYCIN HCL [Suspect]
     Active Substance: CLINDAMYCIN HYDROCHLORIDE
     Indication: ROOT CANAL INFECTION
     Dosage: ?          QUANTITY:1 CAPSULE(S);?
     Route: 048
     Dates: start: 20170606, end: 20170613
  4. SYNTHROID [Concomitant]
     Active Substance: LEVOTHYROXINE SODIUM

REACTIONS (15)
  - Fatigue [None]
  - Insomnia [None]
  - Rash [None]
  - Diarrhoea [None]
  - Peripheral swelling [None]
  - Dyspepsia [None]
  - Pruritus generalised [None]
  - Urticaria [None]
  - Headache [None]
  - Dizziness [None]
  - Flatulence [None]
  - Dysgeusia [None]
  - Vision blurred [None]
  - Joint swelling [None]
  - Fungal infection [None]

NARRATIVE: CASE EVENT DATE: 20170613
